FAERS Safety Report 7035787-5 (Version None)
Quarter: 2010Q4

REPORT INFORMATION
  Report Type: 
  Country: None (occurrence: None)
  Receive Date: 20101008
  Receipt Date: 20100923
  Transmission Date: 20110411
  Serious: Yes (Other)
  Sender: FDA-Public Use
  Company Number: CA-ROCHE-731609

PATIENT

DRUGS (1)
  1. BEVACIZUMAB [Suspect]
     Indication: RETINAL DISORDER
     Route: 031

REACTIONS (2)
  - BLINDNESS [None]
  - EYE INFLAMMATION [None]
